FAERS Safety Report 25689994 (Version 1)
Quarter: 2025Q3

REPORT INFORMATION
  Report Type: Spontaneous
  Country: US (occurrence: None)
  Receive Date: 20250815
  Receipt Date: 20250815
  Transmission Date: 20251021
  Serious: Yes (Hospitalization)
  Sender: FDA-CTU
  Company Number: None

PATIENT
  Sex: Female

DRUGS (15)
  1. EPIDIOLEX [Suspect]
     Active Substance: CANNABIDIOL
     Indication: Epilepsy
     Dosage: 4 ML TWICE A DAY ORAL ?
     Route: 048
     Dates: start: 20250512
  2. ALPRAZOLAM [Concomitant]
     Active Substance: ALPRAZOLAM
  3. BACLOFEN [Concomitant]
     Active Substance: BACLOFEN
  4. CLOBAZAM [Concomitant]
     Active Substance: CLOBAZAM
  5. CLONIDINE [Concomitant]
     Active Substance: CLONIDINE
  6. Gallifrey 5mg [Concomitant]
  7. LAMOTRIGINE [Concomitant]
     Active Substance: LAMOTRIGINE
  8. Levalbuterol 0.31mg/3ml [Concomitant]
  9. Nadolol 20mg [Concomitant]
  10. Pedia D-Vite 400IU Drops [Concomitant]
  11. RISPERIDONE [Concomitant]
     Active Substance: RISPERIDONE
  12. Sodium Chloride 3% Nebulizer [Concomitant]
  13. TIZANIDINE [Concomitant]
     Active Substance: TIZANIDINE
  14. TOPIRAMATE [Concomitant]
     Active Substance: TOPIRAMATE
  15. Valtoco 10mg nasal spray [Concomitant]

REACTIONS (1)
  - Pneumonia [None]
